FAERS Safety Report 17099274 (Version 1)
Quarter: 2019Q4

REPORT INFORMATION
  Report Type: Spontaneous
  Country: US (occurrence: US)
  Receive Date: 20191201
  Receipt Date: 20191201
  Transmission Date: 20200122
  Serious: Yes (Disabling)
  Sender: FDA-Public Use
  Company Number: None

PATIENT
  Age: 34 Year
  Sex: Female
  Weight: 65.25 kg

DRUGS (1)
  1. CIPRO [Suspect]
     Active Substance: CIPROFLOXACIN HYDROCHLORIDE
     Indication: URINARY TRACT INFECTION
     Route: 048
     Dates: start: 20160917, end: 20160924

REACTIONS (5)
  - Cardiac disorder [None]
  - Nervous system disorder [None]
  - Loss of personal independence in daily activities [None]
  - Musculoskeletal disorder [None]
  - Quality of life decreased [None]

NARRATIVE: CASE EVENT DATE: 20161201
